FAERS Safety Report 8052690-2 (Version None)
Quarter: 2012Q1

REPORT INFORMATION
  Report Type: 
  Country: None (occurrence: None)
  Receive Date: 20120118
  Receipt Date: 20120118
  Transmission Date: 20120608
  Serious: Yes (Hospitalization)
  Sender: FDA-Public Use
  Company Number: None

PATIENT
  Age: 69 Year
  Sex: Female
  Weight: 56.699 kg

DRUGS (2)
  1. INDERAL [Concomitant]
  2. RIFAMPIN [Suspect]
     Indication: MYCOBACTERIUM AVIUM COMPLEX INFECTION
     Dosage: 2 PILLS
     Route: 048
     Dates: start: 20111001, end: 20111021

REACTIONS (4)
  - DIALYSIS [None]
  - PRODUCT LABEL ISSUE [None]
  - DRUG INTERACTION [None]
  - RENAL FAILURE [None]
